FAERS Safety Report 8224663-8 (Version None)
Quarter: 2012Q1

REPORT INFORMATION
  Report Type: 
  Country: None (occurrence: None)
  Receive Date: 20120320
  Receipt Date: 20120320
  Transmission Date: 20120608
  Serious: No
  Sender: FDA-Public Use
  Company Number: None

PATIENT
  Age: 8 Year
  Sex: Female

DRUGS (3)
  1. LENSCALE ALLERGENIC EXTRACT [Suspect]
     Indication: RHINITIS ALLERGIC
     Dosage: WEEKLY
     Dates: start: 20100419, end: 20120224
  2. LENSCALE ALLERGENIC EXTRACT [Suspect]
     Indication: ASTHMA
     Dosage: WEEKLY
     Dates: start: 20100419, end: 20120224
  3. LENSCALE ALLERGENIC EXTRACT [Suspect]

REACTIONS (1)
  - URTICARIA [None]
